FAERS Safety Report 19706952 (Version 1)
Quarter: 2021Q3

REPORT INFORMATION
  Report Type: Spontaneous
  Country: US (occurrence: US)
  Receive Date: 20210816
  Receipt Date: 20210816
  Transmission Date: 20211014
  Serious: Yes (Death, Hospitalization)
  Sender: FDA-Public Use
  Company Number: None

PATIENT
  Age: 76 Year
  Sex: Male
  Weight: 93.6 kg

DRUGS (22)
  1. SUCRALFATE (CARAFATE) 100MG/ML SUSPENSION [Concomitant]
     Dates: start: 20210510, end: 20210709
  2. PROPOFOL (DIPRIVAN) 10MG/ML INFUSION [Concomitant]
     Dates: start: 20210630, end: 20210706
  3. VANCOMYCIN (VANCOCIN) IN SODIUM CHLORIDE 0.9% 250ML IVPB [Concomitant]
     Dates: start: 20210630, end: 20210705
  4. SULFAMETHOXAZOLE TRIMETHOPRIM (BACTRIM DS, SEPTRA DS) 800?160MG TABLET [Concomitant]
     Dates: start: 20210628, end: 20210709
  5. NOREPINEPHRINE IN SODIUM CHLORIDE 0.9% (LEVOPHED) 4MG/250ML (16MCG/ML) [Concomitant]
     Dates: start: 20210630, end: 20210709
  6. TIOTROPIUM (SPIRIVA) 18MCG CAPSULE [Concomitant]
     Dates: start: 20210621, end: 20210709
  7. DOXAZOSIN (CARDURA) 4MG TABLET [Concomitant]
     Dates: start: 20210622, end: 20210709
  8. METHYLPREDNISOLONE SODIUM SUCCINATE (SOLU?MEDROL) 40MG/ML INJECTION [Concomitant]
     Dates: start: 20210621, end: 20210709
  9. TRIAMCINOLONE (KENALOG) 0.1% CREAM [Concomitant]
     Dates: start: 20210622, end: 20210709
  10. VASOPRESSIN IN 0.9% SODIUM CHLORIDE (VASOSTRICT) 20UNIT/100ML [Concomitant]
     Dates: start: 20210709, end: 20210709
  11. OXYCODONE (ROXIXODONE) TABLET 10MG [Concomitant]
     Dates: start: 20210627, end: 20210709
  12. FLUTICASONE PROPIONATE ? SALMETEROL (ADVAIR DISKUS) 250?50MCG/DOSE [Concomitant]
     Dates: start: 20210621, end: 20210709
  13. PANTOPRAZOLE (PROTONIX) 40MG EC TABLET [Concomitant]
     Dates: start: 20210510, end: 20210709
  14. LIDOCAINE (XYLOCAINE) 10MG/ML (1%) INJECTION [Concomitant]
     Dates: start: 20210629, end: 20210630
  15. INSULIN GLARGINE (LANTUS, BASAGLAR) INJECTION 100 UNITS/ML PEN [Concomitant]
     Dates: start: 20210629, end: 20210709
  16. ONDANSETRON (ZOFRAN) INJECTION [Concomitant]
     Dates: start: 20210630, end: 20210709
  17. APIXABAN (ELIQUIS) 5MG TABLET [Concomitant]
     Dates: start: 20210611, end: 20210709
  18. ASPIRIN 81MG CHEWABLE TABLET [Concomitant]
     Dates: start: 20210622, end: 20210709
  19. HYDROMORPHONE (DILAUDID) INJECTION [Concomitant]
     Dates: start: 20210628, end: 20210709
  20. PEMBROLIZUMAB. [Suspect]
     Active Substance: PEMBROLIZUMAB
     Dosage: ?          OTHER FREQUENCY:EVERY 21 DAYS;?
     Route: 042
     Dates: start: 20200114, end: 20210602
  21. BACITRACIN ZINC OINTMENT [Concomitant]
     Active Substance: BACITRACIN ZINC
     Dates: start: 20210622, end: 20210701
  22. ENOXAPARIN (LOVENOX) INJECTION SYRINGE 100MG [Concomitant]
     Dates: start: 20210627, end: 20210709

REACTIONS (5)
  - Toxic epidermal necrolysis [None]
  - Hypotension [None]
  - Rash erythematous [None]
  - Stevens-Johnson syndrome [None]
  - Staphylococcal bacteraemia [None]

NARRATIVE: CASE EVENT DATE: 20210610
